FAERS Safety Report 13315487 (Version 1)
Quarter: 2017Q1

REPORT INFORMATION
  Report Type: Report from Study
  Country: DE (occurrence: DE)
  Receive Date: 20170310
  Receipt Date: 20170310
  Transmission Date: 20170428
  Serious: Yes (Hospitalization)
  Sender: FDA-Public Use
  Company Number: DE-ELI_LILLY_AND_COMPANY-19238724

PATIENT
  Age: 61 Year
  Sex: Male
  Weight: 88 kg

DRUGS (24)
  1. CETUXIMAB. [Suspect]
     Active Substance: CETUXIMAB
     Indication: SQUAMOUS CELL CARCINOMA OF HEAD AND NECK
     Dosage: 720 MG, SINGLE
     Route: 042
     Dates: start: 20121008, end: 20121008
  2. CLEMASTIN [Concomitant]
     Active Substance: CLEMASTINE
     Indication: PREMEDICATION
     Dosage: 2 MG, WEEKLY (1/W)
     Dates: start: 20121008
  3. PREDNISOLON                        /00016201/ [Concomitant]
     Active Substance: PREDNISOLONE
     Indication: PREMEDICATION
     Dosage: 100 MG, WEEKLY (1/W)
     Dates: start: 20121008
  4. SEVREDOL [Concomitant]
     Active Substance: MORPHINE
     Indication: ORAL PAIN
     Dosage: 10 MG, UNK
     Dates: start: 20121110, end: 201212
  5. BETAISODONA [Concomitant]
     Active Substance: POVIDONE-IODINE
     Indication: MUCOSAL INFLAMMATION
     Dosage: UNK
     Dates: start: 20121109
  6. CETIRIZIN [Concomitant]
     Active Substance: CETIRIZINE HYDROCHLORIDE
     Indication: PRURITUS
     Dosage: 10 MG, UNK
     Dates: start: 20121029, end: 201212
  7. SIMVASTATIN. [Concomitant]
     Active Substance: SIMVASTATIN
     Indication: MYOCARDIAL INFARCTION
     Dosage: 40 MG, UNK
  8. TOREM                              /01036501/ [Concomitant]
     Active Substance: TORSEMIDE
     Indication: HYPERTENSION
     Dosage: 10 MG, UNK
     Dates: end: 20121206
  9. NEXIUM [Concomitant]
     Active Substance: ESOMEPRAZOLE MAGNESIUM
     Indication: PROPHYLAXIS AGAINST GASTROINTESTINAL ULCER
     Dosage: UNK
     Dates: start: 20121207, end: 20130116
  10. DUROGESIC [Concomitant]
     Active Substance: FENTANYL
     Indication: ORAL PAIN
     Dosage: 25 UG, EVERY HOUR
     Dates: start: 20121112, end: 20130116
  11. LAXANS                             /00064401/ [Concomitant]
     Indication: CONSTIPATION
     Dosage: UNK
     Dates: start: 20121109, end: 20121206
  12. MOVICOL [Concomitant]
     Active Substance: POLYETHYLENE GLYCOL 3350\POTASSIUM CHLORIDE\SODIUM BICARBONATE\SODIUM CHLORIDE
     Indication: CONSTIPATION
     Dosage: UNK
     Dates: start: 20121109, end: 20121206
  13. PARACETAMOL [Concomitant]
     Active Substance: ACETAMINOPHEN
     Indication: PREMEDICATION
     Dosage: 1000 MG, WEEKLY (1/W)
     Dates: start: 20121008
  14. BEPANTHEN                          /00178901/ [Concomitant]
     Indication: DERMATITIS
     Dosage: UNK
     Dates: start: 20121109, end: 20130116
  15. PASPERTIN                          /00041902/ [Concomitant]
     Active Substance: METOCLOPRAMIDE HYDROCHLORIDE
     Indication: DERMATITIS
     Dosage: UNK
     Dates: start: 20121109, end: 201301
  16. NACL + GLUCOSE [Concomitant]
     Indication: RENAL FAILURE
     Dosage: UNK
     Dates: start: 20121206, end: 20121208
  17. CETUXIMAB. [Suspect]
     Active Substance: CETUXIMAB
     Dosage: 450 MG, WEEKLY (1/W)
     Route: 042
     Dates: start: 20121015
  18. RANITIDINE. [Concomitant]
     Active Substance: RANITIDINE
     Indication: PREMEDICATION
     Dosage: 50 MG, WEEKLY (1/W)
     Dates: start: 20121008
  19. ACC                                /00082801/ [Concomitant]
     Active Substance: ACETYLCYSTEINE
     Indication: RENAL FAILURE
     Dosage: 300 MG, UNK
     Dates: start: 20121206, end: 20121207
  20. ASPIRIN. [Concomitant]
     Active Substance: ASPIRIN
     Indication: MYOCARDIAL INFARCTION
     Dosage: UNK
     Dates: start: 20121014
  21. CARVEDILOL. [Concomitant]
     Active Substance: CARVEDILOL
     Indication: HYPERTENSION
     Dosage: 25 MG, UNK
  22. PANTOPRAZOLE SODIUM. [Concomitant]
     Active Substance: PANTOPRAZOLE SODIUM
     Indication: PROPHYLAXIS AGAINST GASTROINTESTINAL ULCER
     Dosage: 20 MG, UNK
     Dates: end: 20121206
  23. QUERTO [Concomitant]
     Indication: PRODUCT USED FOR UNKNOWN INDICATION
     Dosage: 12.5 MG, UNK
     Dates: start: 20121113
  24. TANTUM VERDE [Concomitant]
     Active Substance: BENZYDAMINE HYDROCHLORIDE
     Indication: MUCOSAL INFLAMMATION
     Dosage: UNK
     Dates: start: 20121106, end: 201301

REACTIONS (1)
  - Malnutrition [Recovered/Resolved]

NARRATIVE: CASE EVENT DATE: 20121206
